FAERS Safety Report 6404880-X (Version None)
Quarter: 2009Q4

REPORT INFORMATION
  Report Type: 
  Country: None (occurrence: None)
  Receive Date: 20091019
  Receipt Date: 20091007
  Transmission Date: 20100525
  Serious: Yes (Hospitalization)
  Sender: FDA-Public Use
  Company Number: TR-ELI_LILLY_AND_COMPANY-TR200910001680

PATIENT
  Sex: Female

DRUGS (7)
  1. HUMULIN R [Suspect]
     Indication: DIABETES MELLITUS
     Dosage: 21 IU, DAILY (1/D)
     Route: 058
     Dates: start: 20050101
  2. LANTUS [Concomitant]
     Indication: DIABETES MELLITUS
     Dosage: 26 IU, DAILY (1/D)
     Route: 058
  3. GLUKOFEN [Concomitant]
     Indication: DIABETES MELLITUS
     Dosage: UNK UNK, 3/D
     Route: 048
  4. GLUCOBAY [Concomitant]
     Indication: DIABETES MELLITUS
     Dosage: UNK UNK, 3/D
     Route: 048
  5. RAMIPRIL [Concomitant]
     Dosage: UNK UNK, DAILY (1/D)
     Route: 048
  6. ECOPIRIN [Concomitant]
     Dosage: UNK UNK, DAILY (1/D)
     Route: 048
  7. ALDACTONE [Concomitant]
     Dosage: UNK UNK, DAILY (1/D)
     Route: 048

REACTIONS (2)
  - VASCULAR OCCLUSION [None]
  - WOUND [None]
